FAERS Safety Report 5860065-7 (Version None)
Quarter: 2008Q3

REPORT INFORMATION
  Report Type: 
  Country: None (occurrence: None)
  Receive Date: 20080827
  Receipt Date: 20080818
  Transmission Date: 20090109
  Serious: Yes (Other)
  Sender: FDA-Public Use
  Company Number: AU-PFIZER INC-2008069364

PATIENT
  Age: 78 Year
  Sex: Male

DRUGS (3)
  1. CADUET [Suspect]
     Dosage: TEXT:5MG/10MG-FREQ:DAILY
     Route: 048
  2. ATACAND [Concomitant]
  3. CLARITHROMYCIN [Concomitant]

REACTIONS (9)
  - ABNORMAL DREAMS [None]
  - BALANCE DISORDER [None]
  - CHROMATURIA [None]
  - DIZZINESS [None]
  - FALL [None]
  - FATIGUE [None]
  - NEURALGIA [None]
  - RASH [None]
  - SOMNOLENCE [None]
